FAERS Safety Report 5286108-X (Version None)
Quarter: 2007Q1

REPORT INFORMATION
  Report Type: 
  Country: None (occurrence: None)
  Receive Date: 20070329
  Receipt Date: 20070323
  Transmission Date: 20070707
  Serious: Yes (Other)
  Sender: FDA-Public Use
  Company Number: 236867

PATIENT
  Age: 40 Year
  Sex: Female

DRUGS (6)
  1. RITUXAN [Suspect]
     Indication: SYSTEMIC LUPUS ERYTHEMATOSUS
     Dosage: 1000 MG, INTRAVENOUS
     Route: 042
     Dates: start: 20060901
  2. PREDNISONE TAB [Concomitant]
  3. DURAGESIC-100 [Concomitant]
  4. FOSAMAX [Concomitant]
  5. ZOFRAN [Concomitant]
  6. NORTRIPTYLIN (NORTRIPTYLINE HYDROCHLORIDE) [Concomitant]

REACTIONS (1)
  - SYSTEMIC LUPUS ERYTHEMATOSUS [None]
